FAERS Safety Report 5622062-6 (Version None)
Quarter: 2008Q1

REPORT INFORMATION
  Report Type: 
  Country: None (occurrence: None)
  Receive Date: 20080206
  Receipt Date: 20080129
  Transmission Date: 20080703
  Serious: Yes (Death)
  Sender: FDA-Public Use
  Company Number: 200801AGG00772

PATIENT
  Age: 87 Year
  Sex: Female
  Weight: 80 kg

DRUGS (4)
  1. AGGRASTAT [Suspect]
     Indication: CARDIAC ENZYMES INCREASED
     Dates: start: 20071219
  2. AGGRASTAT [Suspect]
     Indication: ELECTROCARDIOGRAM ST SEGMENT ELEVATION
     Dates: start: 20071219
  3. HEPARIN [Concomitant]
  4. ASPIRIN [Concomitant]

REACTIONS (1)
  - DEATH [None]
